FAERS Safety Report 7042974-9 (Version None)
Quarter: 2010Q4

REPORT INFORMATION
  Report Type: 
  Country: None (occurrence: None)
  Receive Date: 20101013
  Receipt Date: 20101005
  Transmission Date: 20110411
  Serious: Yes (Congenital Anomaly)
  Sender: FDA-Public Use
  Company Number: GB-TEVA-251176ISR

PATIENT

DRUGS (2)
  1. MIRTAZAPINE [Suspect]
     Indication: PERSONALITY DISORDER
     Route: 064
  2. QUETIAPINE [Suspect]
     Indication: PERSONALITY DISORDER
     Route: 064

REACTIONS (3)
  - FIBULA AGENESIS [None]
  - LIMB REDUCTION DEFECT [None]
  - TALIPES [None]
